APPROVED DRUG PRODUCT: HYDRALAZINE HYDROCHLORIDE
Active Ingredient: HYDRALAZINE HYDROCHLORIDE
Strength: 50MG
Dosage Form/Route: TABLET;ORAL
Application: A089222 | Product #001
Applicant: HALSEY DRUG CO INC
Approved: Jan 22, 1986 | RLD: No | RS: No | Type: DISCN